FAERS Safety Report 9399401 (Version 1)
Quarter: 2013Q3

REPORT INFORMATION
  Report Type: Spontaneous
  Country: DK (occurrence: None)
  Receive Date: 20130710
  Receipt Date: 20130710
  Transmission Date: 20140515
  Serious: Yes (Death, Hospitalization)
  Sender: FDA-Public Use
  Company Number: 2013PL000102

PATIENT
  Age: 22 Year
  Sex: Male

DRUGS (1)
  1. AZATHIOPRINE (AZATHIOPRINE) [Suspect]
     Indication: COLITIS ULCERATIVE

REACTIONS (15)
  - Histiocytosis haematophagic [None]
  - Epstein-Barr virus infection [None]
  - Infectious mononucleosis [None]
  - Bone marrow failure [None]
  - Tonsillar hypertrophy [None]
  - Stridor [None]
  - Acute respiratory distress syndrome [None]
  - Disseminated intravascular coagulation [None]
  - Hepatosplenomegaly [None]
  - Pneumomediastinum [None]
  - Ascites [None]
  - Renal failure [None]
  - Gastrointestinal haemorrhage [None]
  - Gastrointestinal necrosis [None]
  - Infarction [None]
